FAERS Safety Report 13487616 (Version 1)
Quarter: 2017Q2

REPORT INFORMATION
  Report Type: Spontaneous
  Country: US (occurrence: US)
  Receive Date: 20170426
  Receipt Date: 20170426
  Transmission Date: 20170830
  Serious: Yes (Other)
  Sender: FDA-Public Use
  Company Number: PHEH2017US011483

PATIENT
  Age: 47 Year
  Sex: Male

DRUGS (7)
  1. VIAGRA [Concomitant]
     Active Substance: SILDENAFIL CITRATE
     Indication: PRODUCT USED FOR UNKNOWN INDICATION
     Dosage: HALF TO 1 30 - 60 MIN PRIOR TO SEXUAL ACTIVITY
     Route: 048
  2. NAPROXEN SODIUM. [Concomitant]
     Active Substance: NAPROXEN SODIUM
     Indication: PRODUCT USED FOR UNKNOWN INDICATION
     Dosage: 1 DF, Q12H
     Route: 048
  3. PROVIGIL [Concomitant]
     Active Substance: MODAFINIL
     Indication: PRODUCT USED FOR UNKNOWN INDICATION
     Route: 065
  4. GENOTROPIN [Concomitant]
     Active Substance: SOMATROPIN
     Indication: PRODUCT USED FOR UNKNOWN INDICATION
     Dosage: 0.4 MG, SQ 5 DAYS EACH WEEK
     Route: 065
  5. WELLBUTRIN SR [Concomitant]
     Active Substance: BUPROPION HYDROCHLORIDE
     Indication: PRODUCT USED FOR UNKNOWN INDICATION
     Dosage: 1 DF, QID
     Route: 048
  6. ULTRAM [Concomitant]
     Active Substance: TRAMADOL HYDROCHLORIDE
     Indication: PRODUCT USED FOR UNKNOWN INDICATION
     Route: 048
  7. RITALIN [Suspect]
     Active Substance: METHYLPHENIDATE HYDROCHLORIDE
     Indication: PRODUCT USED FOR UNKNOWN INDICATION
     Route: 065

REACTIONS (13)
  - Depression [Unknown]
  - Haemoglobin increased [Unknown]
  - Eosinophil count increased [Unknown]
  - Blood testosterone decreased [Unknown]
  - Haematocrit increased [Recovered/Resolved]
  - Weight decreased [Unknown]
  - Primary hypothyroidism [Unknown]
  - Asthenia [Unknown]
  - Red blood cell count increased [Unknown]
  - Hypoglycaemia [Unknown]
  - Growth hormone deficiency [Unknown]
  - Secondary hypogonadism [Unknown]
  - Mood altered [Unknown]

NARRATIVE: CASE EVENT DATE: 20151219
